FAERS Safety Report 9573953 (Version 2)
Quarter: 2013Q4

REPORT INFORMATION
  Report Type: Spontaneous
  Country: IT (occurrence: IT)
  Receive Date: 20131001
  Receipt Date: 20131108
  Transmission Date: 20140711
  Serious: Yes (Other)
  Sender: FDA-Public Use
  Company Number: IT-TEVA-435391USA

PATIENT
  Age: 69 Year
  Sex: Female
  Weight: 57 kg

DRUGS (6)
  1. LEVACT [Suspect]
     Indication: CHRONIC LYMPHOCYTIC LEUKAEMIA
     Route: 042
     Dates: start: 20130221
  2. LEVACT [Suspect]
     Route: 042
     Dates: start: 20130712
  3. MABTHERA [Concomitant]
     Indication: CHEMOTHERAPY
     Route: 041
     Dates: start: 20130228, end: 20130710
  4. CARDIOASPIRIN [Concomitant]
  5. COAPROVEL [Concomitant]
  6. EUTIROX [Concomitant]

REACTIONS (1)
  - Pemphigoid [Recovering/Resolving]
